FAERS Safety Report 7573311-9 (Version None)
Quarter: 2011Q2

REPORT INFORMATION
  Report Type: 
  Country: None (occurrence: None)
  Receive Date: 20110627
  Receipt Date: 20110620
  Transmission Date: 20111010
  Serious: Yes (Hospitalization)
  Sender: FDA-Public Use
  Company Number: FR-SANOFI-AVENTIS-2011SA038745

PATIENT
  Age: 91 Year
  Sex: Female

DRUGS (5)
  1. RAMIPRIL [Suspect]
     Route: 048
     Dates: start: 20110424, end: 20110426
  2. LASIX [Suspect]
     Route: 048
     Dates: start: 20110428
  3. COLCHICINE [Suspect]
     Indication: GOUT
     Route: 048
     Dates: start: 20110425, end: 20110428
  4. TRAMADOL HCL [Suspect]
     Route: 048
     Dates: start: 20110424, end: 20110426
  5. LOVENOX [Suspect]
     Route: 058
     Dates: start: 20110424, end: 20110426

REACTIONS (2)
  - NEUTROPENIA [None]
  - LEUKOPENIA [None]
